FAERS Safety Report 10986955 (Version 1)
Quarter: 2015Q1

REPORT INFORMATION
  Report Type: Spontaneous
  Country: US (occurrence: None)
  Receive Date: 20150304
  Receipt Date: 20150304
  Transmission Date: 20150721
  Serious: Yes (Other)
  Sender: FDA-Public Use
  Company Number: 2015TJP000394

PATIENT
  Age: 70 Year
  Sex: Female

DRUGS (57)
  1. IBUPROFEN (IBUPROFEN) [Suspect]
     Active Substance: IBUPROFEN
     Indication: PRODUCT USED FOR UNKNOWN INDICATION
  2. GLIBENCLAMIDE [Suspect]
     Active Substance: GLYBURIDE
     Indication: PRODUCT USED FOR UNKNOWN INDICATION
  3. RANITIDINE [Suspect]
     Active Substance: RANITIDINE\RANITIDINE HYDROCHLORIDE
     Indication: PRODUCT USED FOR UNKNOWN INDICATION
  4. LOSARTAN (LOSARTAN) [Suspect]
     Active Substance: LOSARTAN
     Indication: PRODUCT USED FOR UNKNOWN INDICATION
  5. BERBERINE (BERBERINE) [Concomitant]
  6. PANTETHINE (PANTETHINE) [Concomitant]
  7. INSULIN (INSULIN) [Concomitant]
     Active Substance: INSULIN NOS
  8. LISINOPRIL (LISINOPRIL) [Suspect]
     Active Substance: LISINOPRIL
     Indication: BLOOD PRESSURE
     Route: 048
  9. LANTUS [Suspect]
     Active Substance: INSULIN GLARGINE
     Indication: PRODUCT USED FOR UNKNOWN INDICATION
  10. BENADRYL [Suspect]
     Active Substance: DIPHENHYDRAMINE HYDROCHLORIDE
     Indication: PRODUCT USED FOR UNKNOWN INDICATION
  11. LUTEIN (XANTOFYL) [Concomitant]
  12. EXCEDRIN (CAFFEINE, PARACETAMOL) [Concomitant]
  13. HYDROCHLOROTHIAZIDE (HYDROCHLOROTHIAZIDE) [Concomitant]
     Active Substance: HYDROCHLOROTHIAZIDE
  14. OMEPRAZOLE. [Suspect]
     Active Substance: OMEPRAZOLE
     Indication: GASTRIC DISORDER
     Route: 048
     Dates: start: 2002
  15. LEVAQUIN [Suspect]
     Active Substance: LEVOFLOXACIN
     Indication: PRODUCT USED FOR UNKNOWN INDICATION
  16. CITRAFEN [Suspect]
     Active Substance: TIQUIZIUM BROMIDE
     Indication: PRODUCT USED FOR UNKNOWN INDICATION
  17. FLAXSEED OIL (LINUM USITATISSIMUM SEED OIL) [Concomitant]
  18. FISH OIL (FISH OIL) [Concomitant]
     Active Substance: FISH OIL
  19. POTASSIUM (POTASSIUM) [Concomitant]
     Active Substance: POTASSIUM
  20. GINGER ROOT (ZINGIBER OFFICINALE RHIZOME) [Concomitant]
  21. ESTROGENS CONJUGATED [Suspect]
     Active Substance: ESTROGENS, CONJUGATED
     Indication: PRODUCT USED FOR UNKNOWN INDICATION
  22. ACIPHEX [Suspect]
     Active Substance: RABEPRAZOLE SODIUM
     Indication: PRODUCT USED FOR UNKNOWN INDICATION
  23. BROMELAIN (BROMELAINS) [Concomitant]
  24. CARNOSINE (CARNOSINE) [Concomitant]
  25. LYSINE (LYSINE) [Concomitant]
     Active Substance: LYSINE
  26. NOVOLIN N (INSULIN HUMAN INJECTION, ISOPHANE) [Concomitant]
  27. CODEINE [Suspect]
     Active Substance: CODEINE
     Indication: PRODUCT USED FOR UNKNOWN INDICATION
  28. NEXIUM [Suspect]
     Active Substance: ESOMEPRAZOLE MAGNESIUM
     Indication: HIATUS HERNIA
     Route: 048
     Dates: start: 2004, end: 20141205
  29. VITAMIN B 1-16-2 (CYANOVCOBALAMIN, PYRIDOXINE HYDROCHLORIDE, THIAMINE HYDROCHLORIDE [Suspect]
     Active Substance: CYANOCOBALAMIN\PYRIDOXINE HYDROCHLORIDE\THIAMINE
     Indication: GENERAL PHYSICAL CONDITION
     Dates: start: 2002
  30. HUMALOG [Suspect]
     Active Substance: INSULIN LISPRO
     Indication: PRODUCT USED FOR UNKNOWN INDICATION
  31. BIOTIN (BIOTIN) [Concomitant]
  32. TUMS [Concomitant]
     Active Substance: CALCIUM CARBONATE
  33. VITAMIN B COMPLEX (CALCIUM PANTOTHENATE, NICOTINAMIDE, PYRIDOXINE HYDROCHLORIDE, RIBOFLAVIN, THIAMINE HYDROCHLORIDE) [Concomitant]
  34. NIFEDIPINE (NIFEDIPINE) PROLONGED-RELEASE TABLET [Suspect]
     Active Substance: NIFEDIPINE
     Indication: PRODUCT USED FOR UNKNOWN INDICATION
  35. METFORMIN [Suspect]
     Active Substance: METFORMIN HYDROCHLORIDE
     Indication: PRODUCT USED FOR UNKNOWN INDICATION
  36. FAMOTIDINE (FAMOTIDINE) [Suspect]
     Active Substance: FAMOTIDINE
     Indication: PRODUCT USED FOR UNKNOWN INDICATION
  37. ZELNORM [Suspect]
     Active Substance: TEGASEROD MALEATE
     Indication: PRODUCT USED FOR UNKNOWN INDICATION
  38. ACETAMINOPHEN (PARACETAMOL) [Concomitant]
     Active Substance: ACETAMINOPHEN
  39. VITAMIKN B1 (TH IAMINE HYDROCHLORIDE) [Concomitant]
  40. ZINC (ZINC) [Concomitant]
  41. MAGNESIUM (MAGNESIUM) [Concomitant]
     Active Substance: MAGNESIUM
  42. MORPHINE SULFATE (MORPHINE SULFATE) [Suspect]
     Active Substance: MORPHINE SULFATE
     Indication: PRODUCT USED FOR UNKNOWN INDICATION
  43. NEXIUM [Suspect]
     Active Substance: ESOMEPRAZOLE MAGNESIUM
     Indication: GASTROOESOPHAGEAL REFLUX DISEASE
     Route: 048
     Dates: start: 2004, end: 20141205
  44. PERCOCET [Suspect]
     Active Substance: ACETAMINOPHEN\OXYCODONE HYDROCHLORIDE
     Indication: PRODUCT USED FOR UNKNOWN INDICATION
  45. METHYLSULFONYLMETHANE [Concomitant]
     Active Substance: DIMETHYL SULFONE
     Indication: PRODUCT USED FOR UNKNOWN INDICATION
  46. QUERCETIN (BENZQUERCIN) [Concomitant]
  47. NAC (ACETYLCYSTEINE) [Concomitant]
  48. CHROMIUM (CHROMIUM) [Concomitant]
  49. PERLUTEX (MEDROXYPROGESTERONE ACETATE) [Concomitant]
  50. LUTEIN (XANTOFYL) [Concomitant]
  51. VITAMIN D3 [Concomitant]
     Active Substance: CHOLECALCIFEROL
  52. VITAMIN K (PHYTOMENADIONE) [Concomitant]
  53. CELECOXIB (CELECOXIB) CAPSULE [Suspect]
     Active Substance: CELECOXIB
     Indication: PRODUCT USED FOR UNKNOWN INDICATION
  54. PREVACID [Suspect]
     Active Substance: LANSOPRAZOLE
     Indication: PRODUCT USED FOR UNKNOWN INDICATION
  55. VITAMIN C [Concomitant]
     Active Substance: ASCORBIC ACID
  56. TURMERIC (CURCUMA LONGA RHIZOME) [Concomitant]
  57. UBIQUINOL (UBIQUINOL) [Concomitant]

REACTIONS (17)
  - Blood zinc decreased [None]
  - Drug ineffective [None]
  - Intentional product misuse [None]
  - Femur fracture [None]
  - Rash macular [None]
  - Diabetes mellitus [None]
  - Barrett^s oesophagus [None]
  - Sleep disorder due to a general medical condition [None]
  - Fatigue [None]
  - Bladder disorder [None]
  - Cystitis [None]
  - Micturition urgency [None]
  - Drug hypersensitivity [None]
  - Abdominal discomfort [None]
  - Condition aggravated [None]
  - Arthritis [None]
  - Blood magnesium decreased [None]

NARRATIVE: CASE EVENT DATE: 2004
